FAERS Safety Report 20990662 (Version 2)
Quarter: 2022Q2

REPORT INFORMATION
  Report Type: Spontaneous
  Country: CN (occurrence: CN)
  Receive Date: 20220622
  Receipt Date: 20220628
  Transmission Date: 20220720
  Serious: Yes (Life-Threatening, Other)
  Sender: FDA-Public Use
  Company Number: ALC2022CN002826

PATIENT
  Age: 74 Year
  Sex: Female

DRUGS (2)
  1. PROPARACAINE HYDROCHLORIDE [Suspect]
     Active Substance: PROPARACAINE HYDROCHLORIDE
     Indication: Anaesthesia eye
     Dosage: UNK
     Route: 047
  2. LEVOFLOXACIN [Suspect]
     Active Substance: LEVOFLOXACIN
     Indication: Infection prophylaxis
     Route: 047

REACTIONS (1)
  - Anaphylactic shock [Unknown]
